FAERS Safety Report 8819765 (Version 1)
Quarter: 2012Q4

REPORT INFORMATION
  Report Type: 
  Country: US (occurrence: US)
  Receive Date: 20121001
  Receipt Date: 20121001
  Transmission Date: 20130627
  Serious: Yes (Death, Other)
  Sender: FDA-Public Use
  Company Number: US-ROCHE-1129995

PATIENT
  Sex: Female

DRUGS (7)
  1. HERCEPTIN [Suspect]
     Indication: BREAST CANCER METASTATIC
     Dosage: 220 loading dose
     Route: 065
     Dates: start: 19980212
  2. HERCEPTIN [Suspect]
     Indication: METASTASES TO BONE
     Dosage: 120 dose
     Route: 065
  3. HERCEPTIN [Suspect]
     Indication: METASTASES TO LIVER
  4. HERCEPTIN [Suspect]
     Indication: METASTASES TO LUNG
  5. AREDIA [Concomitant]
  6. PREDNISONE [Concomitant]
  7. TAXOL [Concomitant]

REACTIONS (7)
  - Death [Fatal]
  - Decreased appetite [Unknown]
  - Abdominal pain [Unknown]
  - Dyspnoea exertional [Unknown]
  - Malaise [Unknown]
  - Weight decreased [Unknown]
  - Oral discomfort [Unknown]
